FAERS Safety Report 7543022-4 (Version None)
Quarter: 2011Q2

REPORT INFORMATION
  Report Type: 
  Country: None (occurrence: None)
  Receive Date: 20110613
  Receipt Date: 20110607
  Transmission Date: 20111010
  Serious: Yes (Death, Other)
  Sender: FDA-Public Use
  Company Number: PHHY2011BR49684

PATIENT
  Age: 87 Year
  Sex: Male

DRUGS (1)
  1. DIOVAN HCT [Suspect]
     Indication: CARDIAC DISORDER
     Dosage: 1 DF (160 MG VALSARTAN/12.5 MG HYDROCHLOROTHIAZIDE)

REACTIONS (1)
  - ACUTE MYOCARDIAL INFARCTION [None]
